FAERS Safety Report 4553309-5 (Version None)
Quarter: 2005Q1

REPORT INFORMATION
  Report Type: 
  Country: None (occurrence: None)
  Receive Date: 20050112
  Receipt Date: 20041227
  Transmission Date: 20050727
  Serious: Yes (Hospitalization)
  Sender: FDA-Public Use
  Company Number: US014484

PATIENT
  Age: 76 Year
  Sex: Male

DRUGS (13)
  1. ACTIQ [Suspect]
     Indication: PAIN
     Dosage: 200 UG BID BUCCAL
     Route: 002
     Dates: start: 20040101
  2. TRISENOX [Suspect]
     Indication: MYELODYSPLASTIC SYNDROME
     Dosage: 23.37 MG INTRAVENOUS
     Route: 042
     Dates: start: 20040405, end: 20040407
  3. DURAGESIC [Suspect]
     Indication: PAIN
     Dosage: 75 UG Q72HR TRANSDERMAL
     Route: 062
     Dates: start: 20040101
  4. MORPHINE [Suspect]
     Indication: PAIN
  5. HYDROCHLOROTHIAZIDE [Concomitant]
  6. ZOCOR [Concomitant]
  7. PROPRANOLOL HYDROCHLORIDE [Concomitant]
  8. CELEBREX [Concomitant]
  9. MULTIVITAMIN [Concomitant]
  10. ASPIRIN [Concomitant]
  11. CELEXA [Concomitant]
  12. CARBIDOPA AND LEVODOPA [Concomitant]
  13. NEURONTIN [Concomitant]

REACTIONS (13)
  - BLOOD PRESSURE INCREASED [None]
  - CLONUS [None]
  - CONFUSIONAL STATE [None]
  - COORDINATION ABNORMAL [None]
  - DELIRIUM [None]
  - DRUG TOXICITY [None]
  - DYSARTHRIA [None]
  - EXTRAPYRAMIDAL DISORDER [None]
  - FACIAL PALSY [None]
  - FALL [None]
  - FIBULA FRACTURE [None]
  - TRANSIENT ISCHAEMIC ATTACK [None]
  - TREATMENT NONCOMPLIANCE [None]
